FAERS Safety Report 15486897 (Version 1)
Quarter: 2018Q4

REPORT INFORMATION
  Report Type: Report from Study
  Country: FR (occurrence: FR)
  Receive Date: 20181011
  Receipt Date: 20181011
  Transmission Date: 20190205
  Serious: Yes (Hospitalization)
  Sender: FDA-Public Use
  Company Number: FR-ACCORD-073079

PATIENT
  Age: 72 Year
  Sex: Male
  Weight: 66 kg

DRUGS (6)
  1. AVASTIN [Suspect]
     Active Substance: BEVACIZUMAB
     Indication: COLORECTAL CANCER METASTATIC
     Dosage: LAST DATE OF ADMINISTRATION BEFORE SAE: 17/MAY/2016.
     Route: 065
     Dates: start: 20151110
  2. CALCIUM LEVOFOLINATE [Suspect]
     Active Substance: LEVOLEUCOVORIN CALCIUM
     Indication: COLORECTAL CANCER METASTATIC
     Dosage: LAST DATE OF ADMINISTRATION BEFORE SAE: 03/MAY/2016.
     Route: 065
     Dates: start: 20151110
  3. INSULIN [Concomitant]
     Active Substance: INSULIN NOS
     Indication: TYPE 1 DIABETES MELLITUS
     Route: 058
  4. FLUOROURACIL. [Suspect]
     Active Substance: FLUOROURACIL
     Indication: COLORECTAL CANCER METASTATIC
     Route: 041
     Dates: start: 20151110
  5. XELODA [Suspect]
     Active Substance: CAPECITABINE
     Indication: COLORECTAL CANCER METASTATIC
     Dosage: LAST DATE OF ADMINISTRATION BEFORE SAE OCCURRENCE: 17/MAY/2015.
     Route: 065
     Dates: start: 20150517
  6. PEGYLATED LIPOSOMAL IRINOTECAN [Suspect]
     Active Substance: IRINOTECAN HYDROCHLORIDE
     Indication: COLORECTAL CANCER METASTATIC
     Dosage: LAST DATE OF ADMINISTRATION BEFORE SAE: 26/JAN/2016.
     Route: 065
     Dates: start: 20151110

REACTIONS (6)
  - Dysgeusia [Unknown]
  - Diarrhoea [Recovered/Resolved]
  - Decreased appetite [Recovered/Resolved]
  - Palmar-plantar erythrodysaesthesia syndrome [Recovered/Resolved]
  - Asthenia [Recovered/Resolved]
  - Acral peeling skin syndrome [Unknown]

NARRATIVE: CASE EVENT DATE: 20160517
